FAERS Safety Report 6938026-6 (Version None)
Quarter: 2010Q3

REPORT INFORMATION
  Report Type: 
  Country: None (occurrence: None)
  Receive Date: 20100824
  Receipt Date: 20100811
  Transmission Date: 20110219
  Serious: Yes (Hospitalization)
  Sender: FDA-Public Use
  Company Number: US-ELI_LILLY_AND_COMPANY-US201003007606

PATIENT
  Sex: Female

DRUGS (12)
  1. FORTEO [Suspect]
     Indication: OSTEOPOROSIS
     Dosage: 20 UG, DAILY (1/D)
     Dates: start: 20090819, end: 20100308
  2. RESTASIS [Concomitant]
  3. PRILOSEC [Concomitant]
     Dosage: UNK, 2/D
  4. CALCIUM [Concomitant]
     Dosage: 500 MG, 2/D
  5. CHOLESTIN [Concomitant]
     Dosage: 600 MG, DAILY (1/D)
  6. OSTEO BI-FLEX [Concomitant]
     Dosage: UNK, 2/D
  7. FISH OIL [Concomitant]
     Dosage: 1200 MG, 2/D
  8. LORATADINE [Concomitant]
     Dosage: 10 MG, DAILY (1/D)
  9. DULCOLAX [Concomitant]
     Dosage: 100 MG, DAILY (1/D)
  10. VERAPAMIL [Concomitant]
     Dosage: 120 MG, DAILY (1/D)
  11. AGGRENOX [Concomitant]
     Dosage: UNK, 2/D
  12. SINGULAIR [Concomitant]
     Dosage: UNK, DAILY (1/D)

REACTIONS (2)
  - CHOLECYSTECTOMY [None]
  - CHOLELITHIASIS [None]
